FAERS Safety Report 8524117-5 (Version None)
Quarter: 2012Q3

REPORT INFORMATION
  Report Type: 
  Country: None (occurrence: None)
  Receive Date: 20120720
  Receipt Date: 20120713
  Transmission Date: 20120928
  Serious: Yes (Other)
  Sender: FDA-Public Use
  Company Number: AU-JNJFOC-20120701985

PATIENT
  Sex: Female

DRUGS (3)
  1. EYE DROPS, UNSPECIFIED [Concomitant]
     Indication: IRITIS
     Route: 047
  2. ACETAMINOPHEN [Concomitant]
     Indication: PAIN
     Route: 048
  3. SIMPONI [Suspect]
     Indication: ANKYLOSING SPONDYLITIS
     Route: 058
     Dates: start: 20120419, end: 20120615

REACTIONS (2)
  - IRITIS [None]
  - BREAST CANCER [None]
